FAERS Safety Report 19205877 (Version 1)
Quarter: 2021Q2

REPORT INFORMATION
  Report Type: Spontaneous
  Country: US (occurrence: US)
  Receive Date: 20210503
  Receipt Date: 20210503
  Transmission Date: 20210717
  Serious: No
  Sender: FDA-Public Use
  Company Number: None

PATIENT

DRUGS (2)
  1. REXULTI [Suspect]
     Active Substance: BREXPIPRAZOLE
     Dosage: ?          QUANTITY:1 TABLET(S);OTHER FREQUENCY:MORN/NIGHT??;?
     Route: 048
     Dates: start: 20210421, end: 20210502
  2. LAMTICAL [Concomitant]

REACTIONS (8)
  - Weight increased [None]
  - Constipation [None]
  - Fatigue [None]
  - Chest discomfort [None]
  - Dizziness [None]
  - Alopecia [None]
  - Insomnia [None]
  - Flatulence [None]

NARRATIVE: CASE EVENT DATE: 20210422
